FAERS Safety Report 5386008-0 (Version None)
Quarter: 2007Q3

REPORT INFORMATION
  Report Type: 
  Country: None (occurrence: None)
  Receive Date: 20070710
  Receipt Date: 20070628
  Transmission Date: 20080115
  Serious: Yes (Disabling)
  Sender: FDA-Public Use
  Company Number: OSCN-NO-0706S-0267

PATIENT
  Age: 54 Year
  Sex: Male

DRUGS (14)
  1. OMNISCAN [Suspect]
     Indication: ACOUSTIC NEUROMA
     Dosage: SEE IMAGE
     Route: 042
     Dates: start: 20001201, end: 20001201
  2. OMNISCAN [Suspect]
     Indication: ACOUSTIC NEUROMA
     Dosage: SEE IMAGE
     Route: 042
     Dates: start: 20030402, end: 20030402
  3. OMNISCAN [Suspect]
     Indication: ACOUSTIC NEUROMA
     Dosage: SEE IMAGE
     Route: 042
     Dates: start: 20031112, end: 20031112
  4. OMNISCAN [Suspect]
     Indication: ACOUSTIC NEUROMA
     Dosage: SEE IMAGE
     Route: 042
     Dates: start: 20040509, end: 20040509
  5. OMNISCAN [Suspect]
     Indication: ACOUSTIC NEUROMA
     Dosage: SEE IMAGE
     Route: 042
     Dates: start: 20041112, end: 20041112
  6. TAKEPRON OD [Concomitant]
  7. MARZULENE-S (LEVOGLUTAMIDE W/SODIUM GUALENATE) [Concomitant]
  8. SODIUM CALCIUM [Concomitant]
  9. ISOSORBIDE DINITRATE (FRANDOL) [Concomitant]
  10. ETIZOLAM (DEPAS) [Concomitant]
  11. ETHYL ICOSAPENATATE (EPADEL S) [Concomitant]
  12. DILTIAZEM HYDROCHLORIDE (HERBESSER R) [Concomitant]
  13. WARFARIN SODIUM [Concomitant]
  14. PROHANCE [Concomitant]

REACTIONS (1)
  - NEPHROGENIC SYSTEMIC FIBROSIS [None]
